FAERS Safety Report 5458317-8 (Version None)
Quarter: 2007Q3

REPORT INFORMATION
  Report Type: 
  Country: None (occurrence: None)
  Receive Date: 20070919
  Receipt Date: 20070910
  Transmission Date: 20080115
  Serious: Yes (Other)
  Sender: FDA-Public Use
  Company Number: HQWYE101411SEP07

PATIENT
  Age: 54 Year
  Sex: Female

DRUGS (17)
  1. SIROLIMUS [Suspect]
     Indication: IMMUNOSUPPRESSANT DRUG THERAPY
     Route: 065
     Dates: start: 20050101
  2. SIROLIMUS [Interacting]
     Route: 065
  3. SIROLIMUS [Interacting]
     Route: 065
  4. PREDNISONE [Concomitant]
     Indication: IMMUNOSUPPRESSANT DRUG THERAPY
     Route: 065
     Dates: start: 20010101, end: 20050501
  5. PREDNISONE [Concomitant]
     Route: 065
     Dates: start: 20050501
  6. OMEPRAZOLE [Concomitant]
     Route: 065
     Dates: start: 20010101
  7. NITRGLYCERIN TRANSDERMAL SYSTEM [Concomitant]
     Route: 062
     Dates: start: 20010101
  8. NITRGLYCERIN TRANSDERMAL SYSTEM [Concomitant]
     Route: 062
     Dates: start: 20060701
  9. CLARITHROMYCIN [Interacting]
     Indication: HAEMOPHILUS INFECTION
     Route: 065
     Dates: start: 20060701, end: 20060101
  10. ALLOPURINOL [Concomitant]
     Route: 065
     Dates: start: 20050501
  11. DARBEPOETIN ALFA [Concomitant]
     Route: 065
     Dates: start: 20050501, end: 20060701
  12. DARBEPOETIN ALFA [Concomitant]
     Route: 065
     Dates: start: 20060701
  13. CARVEDILOL [Concomitant]
     Route: 065
     Dates: start: 20060701
  14. SODIUM BICARBONATE [Concomitant]
     Route: 065
  15. CYCLOSPORINE [Concomitant]
     Indication: IMMUNOSUPPRESSANT DRUG THERAPY
     Route: 065
     Dates: start: 20010101, end: 20050501
  16. CYCLOSPORINE [Concomitant]
     Route: 065
     Dates: start: 20050501, end: 20050101
  17. ASPIRIN [Concomitant]
     Route: 065

REACTIONS (3)
  - DRUG INTERACTION [None]
  - IMMUNOSUPPRESSANT DRUG LEVEL INCREASED [None]
  - RENAL IMPAIRMENT [None]
